FAERS Safety Report 18592402 (Version 1)
Quarter: 2020Q4

REPORT INFORMATION
  Report Type: Spontaneous
  Country: IL (occurrence: IL)
  Receive Date: 20201209
  Receipt Date: 20201209
  Transmission Date: 20210114
  Serious: Yes (Other)
  Sender: FDA-Public Use
  Company Number: IL-ROCHE-2728245

PATIENT
  Sex: Male

DRUGS (1)
  1. AVASTIN [Suspect]
     Active Substance: BEVACIZUMAB
     Indication: VISUAL IMPAIRMENT
     Route: 065
     Dates: start: 20200101

REACTIONS (2)
  - Poisoning [Unknown]
  - Blindness unilateral [Unknown]
